FAERS Safety Report 11528533 (Version 1)
Quarter: 2015Q3

REPORT INFORMATION
  Report Type: Spontaneous
  Country: CA (occurrence: CA)
  Receive Date: 20150921
  Receipt Date: 20150921
  Transmission Date: 20151125
  Serious: Yes (Hospitalization, Other)
  Sender: FDA-Public Use
  Company Number: CA-UCBSA-2015029368

PATIENT
  Age: 68 Year
  Sex: Male

DRUGS (7)
  1. VALPROIC ACID. [Suspect]
     Active Substance: VALPROIC ACID
     Indication: TONIC CONVULSION
     Dosage: 650 MG, 4X/DAY (QID)
  2. KEPPRA [Suspect]
     Active Substance: LEVETIRACETAM
     Indication: TONIC CONVULSION
     Dosage: 1500 MG, 2X/DAY (BID)
  3. CARBIDOPA. [Concomitant]
     Active Substance: CARBIDOPA
     Indication: PRODUCT USED FOR UNKNOWN INDICATION
  4. PHENYTOIN. [Suspect]
     Active Substance: PHENYTOIN
     Indication: TONIC CONVULSION
     Dosage: 75 MG, ONCE DAILY (QD)
  5. PHENYTOIN. [Suspect]
     Active Substance: PHENYTOIN
     Dosage: 125 MG, ONCE DAILY (QD)
  6. 5-HTP [Suspect]
     Active Substance: OXITRIPTAN
     Indication: TONIC CONVULSION
     Dosage: 400 MG, 3X/DAY (TID)
  7. APO-VALPROIC [Suspect]
     Active Substance: VALPROIC ACID
     Indication: TONIC CONVULSION
     Dosage: 650 MG, 4X/DAY (QID)

REACTIONS (2)
  - Somnolence [Unknown]
  - Serotonin syndrome [Unknown]
